FAERS Safety Report 17080783 (Version 1)
Quarter: 2019Q4

REPORT INFORMATION
  Report Type: Report from Study
  Country: FR (occurrence: FR)
  Receive Date: 20191127
  Receipt Date: 20191127
  Transmission Date: 20200122
  Serious: Yes (Hospitalization)
  Sender: FDA-Public Use
  Company Number: FR-ROCHE-2002448

PATIENT
  Age: 70 Year
  Sex: Male
  Weight: 49.5 kg

DRUGS (5)
  1. BEVACIZUMAB. [Suspect]
     Active Substance: BEVACIZUMAB
     Indication: METASTATIC RENAL CELL CARCINOMA
     Dosage: LAST DOSE PRIOR TO SAE 17/AUG/2017 (179 MG)?(CUMULATIVE DOSE SINCE 1ST ADMINISTRATION: 3290 MG)
     Route: 042
     Dates: start: 20170428, end: 20171023
  2. ALFUZOSINE [ALFUZOSIN] [Concomitant]
     Active Substance: ALFUZOSIN HYDROCHLORIDE
  3. GEMCITABINE. [Suspect]
     Active Substance: GEMCITABINE
     Indication: METASTATIC RENAL CELL CARCINOMA
     Dosage: LAST DOSE PRIOR TO SAE 19/SEP/2017 (1960 MG)?(CUMULATIVE DOSE SINCE 1ST ADMINISTRATION: 2432000 MG)
     Route: 042
     Dates: start: 20170428
  4. CISPLATIN. [Suspect]
     Active Substance: CISPLATIN
     Indication: METASTATIC RENAL CELL CARCINOMA
     Dosage: LAST DOSE PRIOR TO SAE  07/SEP/2017 (110 MG)?(CUMULATIVE DOSE SINCE 1ST ADMINISTRATION: 570 MG)
     Route: 042
     Dates: start: 20170428
  5. PREDNISONE. [Concomitant]
     Active Substance: PREDNISONE

REACTIONS (2)
  - Thrombocytopenia [Recovered/Resolved with Sequelae]
  - Anaemia [Recovered/Resolved with Sequelae]

NARRATIVE: CASE EVENT DATE: 20170921
